FAERS Safety Report 5429594-4 (Version None)
Quarter: 2007Q3

REPORT INFORMATION
  Report Type: 
  Country: None (occurrence: None)
  Receive Date: 20070829
  Receipt Date: 20070819
  Transmission Date: 20080115
  Serious: Yes (Hospitalization)
  Sender: FDA-Public Use
  Company Number: GB-ROCHE-512285

PATIENT
  Age: 43 Year
  Sex: Female
  Weight: 106.1 kg

DRUGS (4)
  1. ORLISTAT [Suspect]
     Indication: OBESITY
     Route: 048
     Dates: start: 20070716, end: 20070720
  2. VENTOLIN [Concomitant]
     Indication: ASTHMA
     Route: 055
  3. SEREVENT [Concomitant]
     Indication: ASTHMA
     Route: 055
  4. ANTIHYPERTENSIVE NOS [Concomitant]
     Dosage: ANTIHYPERTENSIVE DRUG.

REACTIONS (1)
  - ASTHMA [None]
